FAERS Safety Report 5423522-3 (Version None)
Quarter: 2007Q3

REPORT INFORMATION
  Report Type: 
  Country: None (occurrence: None)
  Receive Date: 20070809
  Receipt Date: 20070809
  Transmission Date: 20080115
  Serious: Yes (Death, Hospitalization)
  Sender: FDA-Public Use
  Company Number: None

PATIENT
  Age: 67 Year
  Sex: Female
  Weight: 65.7716 kg

DRUGS (5)
  1. SUNITINIB 25MG AND 12.5MG TABLETS [Suspect]
     Indication: MALIGNANT MELANOMA
     Dosage: 37.5MG DAILY PO
     Route: 048
     Dates: start: 20070619, end: 20070622
  2. SUNITINIB 25MG AND 12.5MG TABLETS [Suspect]
     Indication: METASTASES TO CENTRAL NERVOUS SYSTEM
     Dosage: 37.5MG DAILY PO
     Route: 048
     Dates: start: 20070619, end: 20070622
  3. RADIATION [Suspect]
     Dosage: 350CGY X 4  1400CGY
     Dates: start: 20070619, end: 20070622
  4. DECADRON [Concomitant]
  5. OXYCODONE HCL [Concomitant]

REACTIONS (2)
  - METASTASES TO CENTRAL NERVOUS SYSTEM [None]
  - STATUS EPILEPTICUS [None]
